FAERS Safety Report 17755574 (Version 2)
Quarter: 2020Q2

REPORT INFORMATION
  Report Type: Spontaneous
  Country: US (occurrence: US)
  Receive Date: 20200507
  Receipt Date: 20200508
  Transmission Date: 20200714
  Serious: Yes (Hospitalization)
  Sender: FDA-Public Use
  Company Number: US-PFIZER INC-2020181069

PATIENT
  Age: 69 Year
  Sex: Male
  Weight: 122.02 kg

DRUGS (4)
  1. ALDACTONE [Suspect]
     Active Substance: SPIRONOLACTONE
     Indication: ABDOMINAL DISTENSION
     Dosage: 50 MG, 1X/DAY (50MG; TAKE ONE DAILY BY MOUTH)
     Route: 048
     Dates: start: 202003, end: 202003
  2. LITHIUM. [Interacting]
     Active Substance: LITHIUM
     Indication: SCHIZOPHRENIA
     Dosage: 300 MG, DAILY
     Route: 048
  3. ALDACTONE [Interacting]
     Active Substance: SPIRONOLACTONE
     Indication: CIRRHOSIS ALCOHOLIC
  4. RISPERIDONE. [Concomitant]
     Active Substance: RISPERIDONE
     Indication: SCHIZOPHRENIA
     Dosage: UNK
     Dates: start: 2009

REACTIONS (7)
  - Toxicity to various agents [Recovering/Resolving]
  - Gait disturbance [Unknown]
  - Confusional state [Unknown]
  - Dyspnoea [Unknown]
  - Product prescribing error [Unknown]
  - Tremor [Unknown]
  - Drug interaction [Recovering/Resolving]

NARRATIVE: CASE EVENT DATE: 202003
